FAERS Safety Report 9180714 (Version 1)
Quarter: 2013Q1

REPORT INFORMATION
  Report Type: Spontaneous
  Country: JP (occurrence: None)
  Receive Date: 20130320
  Receipt Date: 20130320
  Transmission Date: 20140127
  Serious: Yes (Other)
  Sender: FDA-Public Use
  Company Number: 2008JP005390

PATIENT
  Age: 47 Year
  Sex: Female
  Weight: 48 kg

DRUGS (20)
  1. PROGRAF (TACROLIMUS) CAPSULE [Suspect]
     Route: 048
     Dates: start: 20080404, end: 20090129
  2. RINDERON (BETAMETHASONE) [Suspect]
     Indication: LUPUS NEPHRITIS
     Route: 048
     Dates: end: 20080318
  3. PREDNISOLONE (PREDNISOLONE) [Concomitant]
  4. MUCOSTA (REBAMPIDE) [Concomitant]
  5. ONEALFA (ALFACALCIDOL) [Concomitant]
  6. BAKTAR (SULFAMETHOXAZOLE, TRIMETHOPRIM) [Concomitant]
  7. TAKEPRON (LANSOPRAZOLE) [Concomitant]
  8. ANPLAG (SARPROGRELATE HYDROCHLORIDE) [Concomitant]
  9. LUPRAC (TORASEMIDE) [Concomitant]
  10. NU-LOTAN (LOSARTAN POTASSIUM) [Concomitant]
  11. BEZATOL (BEZAFIBRATE) [Concomitant]
  12. PAXIL (PAROXETINE HYDROCHLORIDE) [Concomitant]
  13. BONALON (ALENDRONATE SODIUM) [Concomitant]
  14. MYSLEE (ZOLPIDEM) [Concomitant]
  15. BENET (RISEDRONATE SODIUM) [Concomitant]
  16. HYPEN (ETODOLAC) [Concomitant]
  17. GENINAX (GARENOXACIN MESILATE) [Concomitant]
  18. ASTOMIN (DIMEMORFAN) [Concomitant]
  19. MUCODYNE (CARBOCISTEINE) [Concomitant]
  20. LASIX/00032601/(FUROSEMIDE) [Concomitant]

REACTIONS (8)
  - Gastrointestinal disorder [None]
  - Diarrhoea [None]
  - Arthralgia [None]
  - Renal impairment [None]
  - Bronchitis chronic [None]
  - Corynebacterium infection [None]
  - Bronchitis [None]
  - Dehydration [None]
